FAERS Safety Report 4761920-1 (Version None)
Quarter: 2005Q3

REPORT INFORMATION
  Report Type: 
  Country: None (occurrence: None)
  Receive Date: 20050831
  Receipt Date: 20050705
  Transmission Date: 20060218
  Serious: Yes (Life-Threatening)
  Sender: FDA-Public Use
  Company Number: 244564

PATIENT
  Age: 58 Year
  Sex: Male
  Weight: 99.8 kg

DRUGS (10)
  1. NOVOLIN 70/30 [Suspect]
     Indication: DIABETES MELLITUS INSULIN-DEPENDENT
     Dosage: SLIDING SCALE IU, BID, SUBCUTANEOUS
     Route: 058
     Dates: start: 19950101
  2. COZAAR [Concomitant]
  3. LIPITOR  /NET/ (ATORVASTATIN CALCIUM) [Concomitant]
  4. ACTOS  /CAN/ (PIOGLITAZONE HYDROCHLORIDE) [Concomitant]
  5. PRILOSEC [Concomitant]
  6. FIBERCON (POLYCARBOPHIL CALCIUM) [Concomitant]
  7. FOLIC ACID [Concomitant]
  8. ASPIRIN [Concomitant]
  9. LEXAPRO [Concomitant]
  10. PERCOCET [Concomitant]

REACTIONS (2)
  - HYPOGLYCAEMIC COMA [None]
  - HYPOGLYCAEMIC SEIZURE [None]
